FAERS Safety Report 6537494-1 (Version None)
Quarter: 2010Q1

REPORT INFORMATION
  Report Type: 
  Country: None (occurrence: None)
  Receive Date: 20100114
  Receipt Date: 20091215
  Transmission Date: 20100710
  Serious: No
  Sender: FDA-Public Use
  Company Number: US-BAYER-200917884BCC

PATIENT
  Age: 75 Year
  Sex: Female
  Weight: 61 kg

DRUGS (7)
  1. ALEVE (CAPLET) [Suspect]
     Indication: BACK PAIN
     Dosage: TOTAL DAILY DOSE: 880 MG  UNIT DOSE: 220 MG
     Route: 048
     Dates: start: 20091208
  2. VICODIN [Concomitant]
     Route: 065
  3. HISTA-VENT [Concomitant]
     Route: 065
  4. LEVOXYL [Concomitant]
     Route: 065
  5. LIPITOR [Concomitant]
     Route: 065
  6. DESMOPRESSIN [Concomitant]
     Route: 065
  7. FOSAMAX [Concomitant]
     Route: 065

REACTIONS (1)
  - CONFUSIONAL STATE [None]
